FAERS Safety Report 6572879-9 (Version None)
Quarter: 2010Q1

REPORT INFORMATION
  Report Type: 
  Country: None (occurrence: None)
  Receive Date: 20100207
  Receipt Date: 20100201
  Transmission Date: 20100710
  Serious: Yes (Hospitalization)
  Sender: FDA-Public Use
  Company Number: US-ELI_LILLY_AND_COMPANY-US201002000791

PATIENT
  Sex: Male

DRUGS (5)
  1. HUMALOG [Suspect]
     Dosage: UNK, 3/D
     Dates: start: 20050101
  2. HUMALOG [Suspect]
     Dosage: UNK, 3/D
  3. PROGRAF [Concomitant]
  4. CELLCEPT [Concomitant]
  5. LISINOPRIL [Concomitant]

REACTIONS (2)
  - CARDIAC FAILURE CONGESTIVE [None]
  - HEART RATE INCREASED [None]
